FAERS Safety Report 9363285 (Version 1)
Quarter: 2013Q2

REPORT INFORMATION
  Report Type: Spontaneous
  Country: US (occurrence: US)
  Receive Date: 20130624
  Receipt Date: 20130624
  Transmission Date: 20140414
  Serious: Yes (Death, Other)
  Sender: FDA-Public Use
  Company Number: US-JNJFOC-20130609593

PATIENT
  Sex: Female

DRUGS (4)
  1. DOXORUBICIN HYDROCHLORIDE [Suspect]
     Indication: HER-2 POSITIVE BREAST CANCER
     Dosage: EVERY 2-3 WEEKS FOR 4 CYCLES
     Route: 042
  2. CYCLOPHOSPHAMIDE [Suspect]
     Indication: HER-2 POSITIVE BREAST CANCER
     Dosage: EVERY 2-3 WEEKS FOR 4 CYCLES
     Route: 065
  3. PACLITAXEL [Suspect]
     Indication: HER-2 POSITIVE BREAST CANCER
     Dosage: 75-80 MG/M2 FOR 12 WEEKS OR 175 MG/M2 EVERY 3 WEEKS FOR 4 CYCLES
     Route: 065
  4. TRASTUZUMAB [Suspect]
     Indication: HER-2 POSITIVE BREAST CANCER
     Dosage: LOADING DOSE 4MG/KG OVER 90MIN ON 1ST DAY AND THEN SUBSEQUENTLY 2MG/KG OVER 30MIN/WEEK FOR 12WEEKS
     Route: 065

REACTIONS (2)
  - HER-2 positive breast cancer [Fatal]
  - Breast cancer metastatic [Unknown]
